FAERS Safety Report 6741157-7 (Version None)
Quarter: 2010Q2

REPORT INFORMATION
  Report Type: 
  Country: None (occurrence: None)
  Receive Date: 20100525
  Receipt Date: 20100525
  Transmission Date: 20101027
  Serious: Yes (Disabling, Other)
  Sender: FDA-Public Use
  Company Number: None

PATIENT
  Age: 59 Year
  Sex: Male
  Weight: 68.0396 kg

DRUGS (1)
  1. FLUOROMETHOLONE [Suspect]
     Indication: ANTIINFLAMMATORY THERAPY
     Dosage: .1 % 3X PER DAY

REACTIONS (6)
  - DIZZINESS [None]
  - LACRIMATION INCREASED [None]
  - PAIN [None]
  - PHOTOPSIA [None]
  - VISION BLURRED [None]
  - VITREOUS FLOATERS [None]
